FAERS Safety Report 7205663-3 (Version None)
Quarter: 2010Q4

REPORT INFORMATION
  Report Type: 
  Country: None (occurrence: None)
  Receive Date: 20101231
  Receipt Date: 20101224
  Transmission Date: 20110411
  Serious: Yes (Hospitalization)
  Sender: FDA-Public Use
  Company Number: PHHO2010KR19571

PATIENT
  Sex: Female
  Weight: 52.1 kg

DRUGS (1)
  1. CGS 20267 [Suspect]
     Indication: BREAST CANCER
     Dosage: 2.5 MG, UNK
     Route: 048
     Dates: start: 20080811

REACTIONS (7)
  - CARPAL TUNNEL SYNDROME [None]
  - DEMYELINATION [None]
  - INJURY [None]
  - OSTEOARTHRITIS [None]
  - PAIN IN EXTREMITY [None]
  - PARAESTHESIA [None]
  - POLYNEUROPATHY [None]
